FAERS Safety Report 9982281 (Version 1)
Quarter: 2014Q1

REPORT INFORMATION
  Report Type: Spontaneous
  Country: US (occurrence: None)
  Receive Date: 20140306
  Receipt Date: 20140306
  Transmission Date: 20141002
  Serious: No
  Sender: FDA-Public Use
  Company Number: None

PATIENT
  Age: 71 Year
  Sex: Female
  Weight: 56.25 kg

DRUGS (2)
  1. CARBOPLATIN [Suspect]
     Dates: end: 20140226
  2. GEMCITABINE HYDROCHLORIDE [Suspect]
     Dates: end: 20140226

REACTIONS (2)
  - Chest pain [None]
  - Electrocardiogram ST segment depression [None]
